APPROVED DRUG PRODUCT: HYDROCORTISONE ACETATE 1% AND PRAMOXINE HYDROCHLORIDE 1%
Active Ingredient: HYDROCORTISONE ACETATE; PRAMOXINE HYDROCHLORIDE
Strength: 1%;1%
Dosage Form/Route: AEROSOL, METERED;TOPICAL
Application: A089440 | Product #001
Applicant: GENUS LIFESCIENCES INC
Approved: May 17, 1988 | RLD: No | RS: No | Type: DISCN